FAERS Safety Report 6149196-4 (Version None)
Quarter: 2009Q2

REPORT INFORMATION
  Report Type: 
  Country: None (occurrence: None)
  Receive Date: 20090406
  Receipt Date: 20090406
  Transmission Date: 20091009
  Serious: Yes (Death, Life-Threatening, Hospitalization)
  Sender: FDA-Public Use
  Company Number: None

PATIENT
  Age: 68 Year
  Sex: Male
  Weight: 79.3795 kg

DRUGS (1)
  1. XYZAL [Suspect]
     Indication: NASOPHARYNGITIS
     Dosage: 5MG

REACTIONS (5)
  - COMPLICATIONS OF TRANSPLANTED LIVER [None]
  - DIALYSIS [None]
  - HEPATOTOXICITY [None]
  - JAUNDICE [None]
  - RENAL FAILURE [None]
